FAERS Safety Report 17106374 (Version 7)
Quarter: 2021Q1

REPORT INFORMATION
  Report Type: Spontaneous
  Country: JP (occurrence: JP)
  Receive Date: 20191203
  Receipt Date: 20210111
  Transmission Date: 20210419
  Serious: Yes (Life-Threatening, Hospitalization, Other)
  Sender: FDA-Public Use
  Company Number: JP-009507513-1911JPN003640J

PATIENT
  Age: 75 Year
  Sex: Male
  Weight: 59 kg

DRUGS (6)
  1. MAGMITT [Concomitant]
     Active Substance: MAGNESIUM OXIDE
     Indication: CONSTIPATION
     Dosage: 660 MILLIGRAM, QD
     Route: 048
     Dates: start: 20190122
  2. LORAZEPAM. [Concomitant]
     Active Substance: LORAZEPAM
     Indication: NEUROSIS
     Dosage: 0.5 MILLIGRAM, QD
     Route: 048
     Dates: start: 20190604
  3. OXYCODONE [Concomitant]
     Active Substance: OXYCODONE
     Indication: PAIN
     Dosage: 20 MILLIGRAM, QD
     Route: 048
     Dates: start: 20191018
  4. LUNESTA [Concomitant]
     Active Substance: ESZOPICLONE
     Indication: INSOMNIA
     Dosage: 2 MILLIGRAM, QD
     Route: 048
     Dates: start: 20190604
  5. KEYTRUDA [Suspect]
     Active Substance: PEMBROLIZUMAB
     Indication: BLADDER CANCER STAGE IV
     Dosage: 200 MILLIGRAM, Q3W
     Route: 041
     Dates: start: 20190906, end: 20191018
  6. MIRTAZAPINE. [Concomitant]
     Active Substance: MIRTAZAPINE
     Indication: NEUROSIS
     Dosage: 30 MILLIGRAM, QD
     Route: 048
     Dates: start: 20190507

REACTIONS (3)
  - Bradycardia [Recovered/Resolved]
  - Hyperkalaemia [Recovered/Resolved]
  - Tubulointerstitial nephritis [Recovering/Resolving]

NARRATIVE: CASE EVENT DATE: 20191108
